FAERS Safety Report 18595432 (Version 2)
Quarter: 2021Q3

REPORT INFORMATION
  Report Type: Spontaneous
  Country: US (occurrence: US)
  Receive Date: 20201209
  Receipt Date: 20210902
  Transmission Date: 20211014
  Serious: No
  Sender: FDA-Public Use
  Company Number: US-VERTEX PHARMACEUTICALS-2020-023806

PATIENT
  Sex: Male
  Weight: 16.1 kg

DRUGS (3)
  1. PULMOZYME [Concomitant]
     Active Substance: DORNASE ALFA
  2. ORKAMBI [Suspect]
     Active Substance: IVACAFTOR\LUMACAFTOR
     Indication: CYSTIC FIBROSIS
     Dosage: 1 DOSAGE FORM, BID (MIX 1 PACKET INTO 1 TEASPOONFUL (5 ML) OF SOFT FOOD OR LIQUID )
     Route: 048
  3. ORKAMBI [Suspect]
     Active Substance: IVACAFTOR\LUMACAFTOR
     Dosage: STARTED ON 18?AUG?2021, 100MG LUMACAFTOR/125MG IVACAFTOR TABLET
     Route: 048

REACTIONS (2)
  - SARS-CoV-2 test positive [Unknown]
  - Rhinorrhoea [Unknown]

NARRATIVE: CASE EVENT DATE: 2020
